FAERS Safety Report 9424515 (Version 1)
Quarter: 2013Q3

REPORT INFORMATION
  Report Type: Spontaneous
  Country: US (occurrence: None)
  Receive Date: 20130726
  Receipt Date: 20130726
  Transmission Date: 20140515
  Serious: No
  Sender: FDA-Public Use
  Company Number: None

PATIENT
  Age: 54 Year
  Sex: Female

DRUGS (1)
  1. PEGASYS [Suspect]
     Dosage: INJECT 90 MCG UNDER THE SKIN WEEKLY, DISCARD UNUSED PORTION
     Dates: start: 20130613, end: 20130712

REACTIONS (1)
  - Retinal tear [None]
